FAERS Safety Report 23243536 (Version 6)
Quarter: 2024Q4

REPORT INFORMATION
  Report Type: Spontaneous
  Country: US (occurrence: US)
  Receive Date: 20231130
  Receipt Date: 20241226
  Transmission Date: 20250114
  Serious: No
  Sender: NOVARTIS
  Company Number: US-002147023-NVSC2023US254382

PATIENT
  Sex: Female

DRUGS (3)
  1. MEKINIST [Suspect]
     Active Substance: TRAMETINIB DIMETHYL SULFOXIDE
     Indication: Benign neoplasm
     Dosage: 1.5 MG, QD
     Route: 048
     Dates: start: 202311
  2. MEKINIST [Suspect]
     Active Substance: TRAMETINIB DIMETHYL SULFOXIDE
     Indication: Autonomic neuropathy
  3. MEKINIST [Suspect]
     Active Substance: TRAMETINIB DIMETHYL SULFOXIDE
     Indication: Neurofibromatosis

REACTIONS (9)
  - Rosacea [Unknown]
  - Ageusia [Unknown]
  - Oedema [Unknown]
  - Swelling [Unknown]
  - Hair growth abnormal [Unknown]
  - Product use in unapproved indication [Unknown]
  - Fatigue [Unknown]
  - Myalgia [Unknown]
  - Dehydration [Unknown]
